FAERS Safety Report 7297495-5 (Version None)
Quarter: 2011Q1

REPORT INFORMATION
  Report Type: 
  Country: None (occurrence: None)
  Receive Date: 20110216
  Receipt Date: 20110211
  Transmission Date: 20110831
  Serious: Yes (Life-Threatening)
  Sender: FDA-Public Use
  Company Number: FR-PFIZER INC-2011031078

PATIENT
  Age: 67 Year
  Sex: Male

DRUGS (2)
  1. VAXIGRIP [Suspect]
     Dosage: 1 DF, SINGLE
     Route: 030
     Dates: start: 20101118, end: 20101118
  2. CAVERJECT DUAL [Suspect]
     Dosage: 10 UG, 1 IN 3 DAYS
     Route: 017
     Dates: start: 20080101, end: 20101209

REACTIONS (1)
  - PULMONARY EMBOLISM [None]
